FAERS Safety Report 20032077 (Version 1)
Quarter: 2021Q4

REPORT INFORMATION
  Report Type: Spontaneous
  Country: US (occurrence: US)
  Receive Date: 20211103
  Receipt Date: 20211103
  Transmission Date: 20220303
  Serious: No
  Sender: FDA-Public Use
  Company Number: US-BAUSCH-BL-2021-035862

PATIENT
  Age: 72 Year
  Sex: Male

DRUGS (1)
  1. IPRATROPIUM BROMIDE [Suspect]
     Active Substance: IPRATROPIUM BROMIDE
     Indication: Upper-airway cough syndrome
     Dosage: 2 SPRAYS IN EACH NOSTRIL EVERY DAY.
     Route: 045

REACTIONS (3)
  - Abnormal sensation in eye [Unknown]
  - Mydriasis [Unknown]
  - Accidental exposure to product [Unknown]
